FAERS Safety Report 6367492-2 (Version None)
Quarter: 2009Q3

REPORT INFORMATION
  Report Type: 
  Country: None (occurrence: None)
  Receive Date: 20090921
  Receipt Date: 20090909
  Transmission Date: 20100115
  Serious: Yes (Hospitalization)
  Sender: FDA-Public Use
  Company Number: FR-GENENTECH-287508

PATIENT
  Sex: Male
  Weight: 66 kg

DRUGS (11)
  1. XOLAIR [Suspect]
     Indication: ASTHMA
     Dosage: 375 MG, UNK
     Route: 058
     Dates: start: 20090408
  2. XOLAIR [Suspect]
     Dosage: 375 MG, UNK
     Route: 058
     Dates: start: 20090701
  3. SYMBICORT [Concomitant]
     Indication: DRUG USE FOR UNKNOWN INDICATION
  4. BAMBUTEROL [Concomitant]
     Indication: DRUG USE FOR UNKNOWN INDICATION
  5. SPIRIVA [Concomitant]
     Indication: DRUG USE FOR UNKNOWN INDICATION
  6. VENTOLIN [Concomitant]
     Indication: DRUG USE FOR UNKNOWN INDICATION
  7. INIPOMP [Concomitant]
     Indication: DRUG USE FOR UNKNOWN INDICATION
  8. HYDROCORTISONE [Concomitant]
     Indication: DRUG USE FOR UNKNOWN INDICATION
     Dosage: 10 MG, UNK
  9. KARDEGIC [Concomitant]
     Indication: DRUG USE FOR UNKNOWN INDICATION
  10. FLUCONAZOLE [Concomitant]
     Indication: DRUG USE FOR UNKNOWN INDICATION
  11. PARACETAMOL [Concomitant]
     Indication: DRUG USE FOR UNKNOWN INDICATION

REACTIONS (6)
  - AMNESIA [None]
  - AMNESTIC DISORDER [None]
  - BLOOD CREATINE PHOSPHOKINASE INCREASED [None]
  - CEREBROVASCULAR ACCIDENT [None]
  - ELECTROCARDIOGRAM QRS COMPLEX ABNORMAL [None]
  - ISCHAEMIA [None]
